FAERS Safety Report 17566302 (Version 1)
Quarter: 2020Q1

REPORT INFORMATION
  Report Type: Report from Study
  Country: BR (occurrence: BR)
  Receive Date: 20200320
  Receipt Date: 20200320
  Transmission Date: 20200409
  Serious: Yes (Other)
  Sender: FDA-Public Use
  Company Number: BR-JNJFOC-20200320970

PATIENT
  Sex: Male
  Weight: 95 kg

DRUGS (1)
  1. STELARA [Suspect]
     Active Substance: USTEKINUMAB
     Indication: PSORIASIS
     Dosage: WEEK 0, 4 AND THEN EVERY 12 WEEKS
     Route: 058
     Dates: start: 20181221

REACTIONS (3)
  - Psoriasis [Not Recovered/Not Resolved]
  - Appendicitis [Recovered/Resolved]
  - Product dose omission [Unknown]

NARRATIVE: CASE EVENT DATE: 2019
